FAERS Safety Report 8208686-0 (Version None)
Quarter: 2012Q1

REPORT INFORMATION
  Report Type: 
  Country: None (occurrence: None)
  Receive Date: 20120314
  Receipt Date: 20120306
  Transmission Date: 20120608
  Serious: Yes (Hospitalization)
  Sender: FDA-Public Use
  Company Number: US-BAYER-2012-022987

PATIENT
  Age: 33 Year
  Sex: Female

DRUGS (9)
  1. TRAMADOL HCL [Concomitant]
     Dosage: 50MG EVERY 8 HOURS AS NEEDED
     Dates: start: 20100218
  2. IBUPROFEN [Concomitant]
     Dosage: 600MG EVERY 6 HOURS AS NEEDED
     Dates: start: 20100218
  3. YAZ [Suspect]
     Dosage: UNK
     Dates: start: 20090728, end: 20100307
  4. YASMIN [Suspect]
     Dosage: UNK
     Dates: start: 20090728, end: 20100307
  5. TORADOL [Concomitant]
     Dosage: 600 MG, UNK
     Route: 030
     Dates: start: 20100218
  6. COLACE [Concomitant]
     Dosage: 100MG, 1-2 CAPS TWICE DAILY AS NEEDED
  7. DROSPIRENONE AND ETHINYL ESTRADIOL [Suspect]
     Dosage: UNK
     Dates: start: 20090728, end: 20100307
  8. DICLOFENAC SODIUM [Concomitant]
     Dosage: 50 MG, TID
  9. TYLENOL W/ CODEINE [Concomitant]
     Dosage: 1-2 TABLETS EVERY 4 HOURS AS NEEDED
     Dates: start: 20100218

REACTIONS (4)
  - GENERAL PHYSICAL HEALTH DETERIORATION [None]
  - DEEP VEIN THROMBOSIS [None]
  - PAIN [None]
  - EMOTIONAL DISTRESS [None]
